FAERS Safety Report 5530257-5 (Version None)
Quarter: 2007Q4

REPORT INFORMATION
  Report Type: 
  Country: None (occurrence: None)
  Receive Date: 20071127
  Receipt Date: 20071112
  Transmission Date: 20080405
  Serious: Yes (Disabling)
  Sender: FDA-Public Use
  Company Number: 2007S1011869

PATIENT
  Age: 46 Year
  Sex: Male
  Weight: 90 kg

DRUGS (2)
  1. TERBINAFINE HYDROCHLORIDE [Suspect]
     Indication: NAIL INFECTION
     Dosage: 250 MG; ORAL
     Route: 048
     Dates: start: 20070828, end: 20070924
  2. VALPROATE SODIUM [Concomitant]

REACTIONS (2)
  - PHOTOSENSITIVITY REACTION [None]
  - URTICARIA [None]
